FAERS Safety Report 10210510 (Version 2)
Quarter: 2014Q2

REPORT INFORMATION
  Report Type: Spontaneous
  Country: US (occurrence: US)
  Receive Date: 20140602
  Receipt Date: 20140617
  Transmission Date: 20141212
  Serious: No
  Sender: FDA-Public Use
  Company Number: US-PFIZER INC-2014148055

PATIENT
  Sex: Female

DRUGS (3)
  1. PREMARIN [Suspect]
     Dosage: 1 G, DAILY
     Route: 067
     Dates: start: 20140508
  2. PREMARIN [Suspect]
     Dosage: 1 G, 2X/WEEK
     Route: 067
     Dates: start: 20140522
  3. PREMARIN [Suspect]

REACTIONS (3)
  - Vulvovaginal discomfort [Unknown]
  - Vulvovaginal burning sensation [Unknown]
  - Vulvovaginal pruritus [Unknown]
